FAERS Safety Report 20633593 (Version 2)
Quarter: 2022Q2

REPORT INFORMATION
  Report Type: Spontaneous
  Country: DE (occurrence: DE)
  Receive Date: 20220324
  Receipt Date: 20220407
  Transmission Date: 20220721
  Serious: Yes (Hospitalization)
  Sender: FDA-Public Use
  Company Number: DE-TEVA-2022-DE-2018939

PATIENT
  Age: 72 Year
  Sex: Female

DRUGS (3)
  1. MYCOPHENOLIC ACID [Suspect]
     Active Substance: MYCOPHENOLIC ACID
     Indication: Immunosuppressant drug therapy
     Dosage: 1000 MILLIGRAM DAILY;
     Route: 065
  2. TACROLIMUS [Suspect]
     Active Substance: TACROLIMUS
     Indication: Immunosuppressant drug therapy
     Dosage: .5 MILLIGRAM DAILY;
     Route: 065
  3. LANTHANUM CARBONATE [Suspect]
     Active Substance: LANTHANUM CARBONATE
     Indication: Hyperphosphataemia
     Dosage: 2000 MILLIGRAM DAILY;
     Route: 048

REACTIONS (6)
  - Gastric disorder [Recovering/Resolving]
  - Faecaloma [Recovering/Resolving]
  - Reactive gastropathy [Recovering/Resolving]
  - Subileus [Recovering/Resolving]
  - Gastritis haemorrhagic [Recovering/Resolving]
  - Vomiting [Recovering/Resolving]
